FAERS Safety Report 17714831 (Version 2)
Quarter: 2020Q2

REPORT INFORMATION
  Report Type: Spontaneous
  Country: CA (occurrence: CA)
  Receive Date: 20200427
  Receipt Date: 20200505
  Transmission Date: 20200714
  Serious: Yes (Hospitalization, Other)
  Sender: FDA-Public Use
  Company Number: CA-PFIZER INC-2018076121

PATIENT
  Age: 63 Year
  Sex: Female

DRUGS (6)
  1. XELJANZ [Suspect]
     Active Substance: TOFACITINIB CITRATE
     Dosage: 2.5 MG, 2X/DAY
     Route: 048
     Dates: start: 20180115, end: 20180122
  2. XELJANZ [Suspect]
     Active Substance: TOFACITINIB CITRATE
     Dosage: 5 MG, 2X/DAY
     Route: 048
     Dates: end: 20200215
  3. XELJANZ [Suspect]
     Active Substance: TOFACITINIB CITRATE
     Dosage: 7.5 MG, DAILY (5 MG IN THE MORNING AND 2.5 MG AT NIGHT)
     Route: 048
     Dates: start: 20180319
  4. XELJANZ [Suspect]
     Active Substance: TOFACITINIB CITRATE
     Dosage: 1.5 DF, DAILY [1 TAB AM (MORNING), 1/2 TABLET PM (NIGHT)]
     Route: 048
     Dates: start: 20171127, end: 20171212
  5. XELJANZ [Suspect]
     Active Substance: TOFACITINIB CITRATE
     Dosage: 5 MG, 2X/DAY
     Route: 048
     Dates: start: 20180122, end: 20180318
  6. XELJANZ [Suspect]
     Active Substance: TOFACITINIB CITRATE
     Indication: RHEUMATOID ARTHRITIS
     Dosage: 0.5 DF, 2X/DAY
     Route: 048
     Dates: start: 20171113, end: 20171127

REACTIONS (18)
  - Diverticulitis [Unknown]
  - Abnormal dreams [Not Recovered/Not Resolved]
  - Acne [Unknown]
  - Sleep disorder [Unknown]
  - Weight increased [Not Recovered/Not Resolved]
  - Abscess [Unknown]
  - Abdominal pain [Unknown]
  - Off label use [Unknown]
  - Intestinal perforation [Unknown]
  - Infection [Unknown]
  - Influenza [Unknown]
  - Dry mouth [Not Recovered/Not Resolved]
  - Product use issue [Unknown]
  - Oedema peripheral [Not Recovered/Not Resolved]
  - Fatigue [Not Recovered/Not Resolved]
  - Visual impairment [Not Recovered/Not Resolved]
  - Therapeutic product effect incomplete [Unknown]
  - Osteoarthritis [Not Recovered/Not Resolved]

NARRATIVE: CASE EVENT DATE: 20180319
